FAERS Safety Report 5021156-6 (Version None)
Quarter: 2006Q2

REPORT INFORMATION
  Report Type: 
  Country: None (occurrence: None)
  Receive Date: 20060605
  Receipt Date: 20060522
  Transmission Date: 20061013
  Serious: Yes (Death)
  Sender: FDA-Public Use
  Company Number: 2006067787

PATIENT

DRUGS (1)
  1. GEODON [Suspect]
     Indication: ILL-DEFINED DISORDER

REACTIONS (1)
  - DEATH [None]
